FAERS Safety Report 9725222 (Version 1)
Quarter: 2013Q4

REPORT INFORMATION
  Report Type: Spontaneous
  Country: US (occurrence: None)
  Receive Date: 20131129
  Receipt Date: 20131129
  Transmission Date: 20140711
  Serious: Yes (Other)
  Sender: FDA-Public Use
  Company Number: 2013SA121618

PATIENT
  Sex: Male

DRUGS (5)
  1. ACT ANTICAVITY FLUORIDE MINT [Suspect]
  2. ANALGESICS [Concomitant]
  3. FISH OIL [Concomitant]
  4. AMBIEN [Concomitant]
  5. WELLBUTRIN [Concomitant]

REACTIONS (6)
  - Paraesthesia oral [None]
  - Lip swelling [None]
  - Swollen tongue [None]
  - Lymphadenopathy [None]
  - Chapped lips [None]
  - Stomatitis [None]
